FAERS Safety Report 5670345-6 (Version None)
Quarter: 2008Q1

REPORT INFORMATION
  Report Type: 
  Country: None (occurrence: None)
  Receive Date: 20080318
  Receipt Date: 20080318
  Transmission Date: 20080703
  Serious: Yes (Hospitalization, Disabling)
  Sender: FDA-Public Use
  Company Number: None

PATIENT
  Age: 35 Year
  Sex: Female
  Weight: 61.2356 kg

DRUGS (1)
  1. HEPARIN [Suspect]
     Indication: CARDIAC OPERATION
     Route: 058
     Dates: start: 20071011, end: 20071012

REACTIONS (7)
  - DRUG HYPERSENSITIVITY [None]
  - HEPARIN-INDUCED THROMBOCYTOPENIA [None]
  - HYPOTENSION [None]
  - PHARMACEUTICAL PRODUCT COMPLAINT [None]
  - SUPRAVENTRICULAR TACHYCARDIA [None]
  - THERAPEUTIC PRODUCT CONTAMINATION [None]
  - THROMBOSIS [None]
